FAERS Safety Report 9461811 (Version 1)
Quarter: 2013Q3

REPORT INFORMATION
  Report Type: Spontaneous
  Country: BR (occurrence: BR)
  Receive Date: 20130816
  Receipt Date: 20130816
  Transmission Date: 20140515
  Serious: Yes (Other)
  Sender: FDA-Public Use
  Company Number: BR-PFIZER INC-2013233941

PATIENT
  Age: 68 Year
  Sex: Male

DRUGS (1)
  1. XALATAN [Suspect]
     Indication: GLAUCOMA
     Dosage: 1 DROP IN UNSPECIFIED EYE, 1X/DAY
     Route: 047
     Dates: start: 20100809

REACTIONS (2)
  - Arthropathy [Unknown]
  - Arthralgia [Unknown]
